FAERS Safety Report 11031009 (Version 1)
Quarter: 2015Q2

REPORT INFORMATION
  Report Type: Spontaneous
  Country: US (occurrence: None)
  Receive Date: 20150414
  Receipt Date: 20150414
  Transmission Date: 20150821
  Serious: Yes (Disabling)
  Sender: FDA-Public Use
  Company Number: None

PATIENT
  Age: 55 Year
  Sex: Female
  Weight: 111.13 kg

DRUGS (4)
  1. CLOMAZEPAM [Concomitant]
  2. METOPROLOL [Concomitant]
     Active Substance: METOPROLOL
  3. METAXALONE. [Suspect]
     Active Substance: METAXALONE
     Indication: PHYSIOTHERAPY
     Route: 048
     Dates: start: 20140925, end: 20140925
  4. JANUMET [Concomitant]
     Active Substance: METFORMIN HYDROCHLORIDE\SITAGLIPTIN PHOSPHATE

REACTIONS (9)
  - Walking aid user [None]
  - Parkinson^s disease [None]
  - Tremor [None]
  - Dysphemia [None]
  - Feeling abnormal [None]
  - Coordination abnormal [None]
  - Hypersensitivity [None]
  - Disturbance in attention [None]
  - Memory impairment [None]

NARRATIVE: CASE EVENT DATE: 20140926
